FAERS Safety Report 4852095-9 (Version None)
Quarter: 2005Q4

REPORT INFORMATION
  Report Type: 
  Country: None (occurrence: None)
  Receive Date: 20051212
  Receipt Date: 20051212
  Transmission Date: 20060501
  Serious: Yes (Hospitalization, Disabling)
  Sender: FDA-Public Use
  Company Number: None

PATIENT
  Age: 46 Year
  Sex: Male
  Weight: 100 kg

DRUGS (3)
  1. HYDROCHLOROTHIAZIDE 25MG TAB [Suspect]
     Indication: HYPERTENSION
     Dosage: 25 MG QD PO
     Route: 048
     Dates: start: 20040101, end: 20051120
  2. NEXIUM [Concomitant]
  3. CYMBALTA [Concomitant]

REACTIONS (3)
  - PAROTITIS [None]
  - PHARYNGITIS [None]
  - SINUSITIS [None]
